FAERS Safety Report 4606612-4 (Version None)
Quarter: 2005Q2

REPORT INFORMATION
  Report Type: 
  Country: None (occurrence: None)
  Receive Date: 20050223
  Receipt Date: 20040603
  Transmission Date: 20051028
  Serious: Yes (Other)
  Sender: FDA-Public Use
  Company Number: WAES 0406USA00339

PATIENT
  Sex: 0

DRUGS (1)
  1. ZOCOR [Suspect]
     Dates: start: 20020601

REACTIONS (1)
  - RHABDOMYOLYSIS [None]
